FAERS Safety Report 20461104 (Version 14)
Quarter: 2025Q4

REPORT INFORMATION
  Report Type: Spontaneous
  Country: US (occurrence: US)
  Receive Date: 20220211
  Receipt Date: 20251103
  Transmission Date: 20260118
  Serious: Yes (Other)
  Sender: SANOFI AVENTIS
  Company Number: US-SA-SAC20220204001089

PATIENT
  Age: 12 Year
  Sex: Male

DRUGS (8)
  1. DUPIXENT [Suspect]
     Active Substance: DUPILUMAB
     Indication: Asthma
     Dosage: 400 MG, 1X
     Route: 058
  2. DUPIXENT [Suspect]
     Active Substance: DUPILUMAB
     Indication: Respiratory disorder
     Dosage: 200 MG, QOW
     Route: 058
     Dates: start: 202202
  3. DUPIXENT [Suspect]
     Active Substance: DUPILUMAB
     Dosage: 300 MG, QOW
     Route: 058
     Dates: start: 20241210
  4. NUTROPIN AG [Concomitant]
     Dosage: UNK
  5. XOLAIR [Concomitant]
     Active Substance: OMALIZUMAB
     Dosage: UNK
  6. SOMATROPIN [Concomitant]
     Active Substance: SOMATROPIN
     Dosage: UNK
  7. NORDITROPIN [Concomitant]
     Active Substance: SOMATROPIN
     Dosage: UNK
  8. NORDITROPIN [Concomitant]
     Active Substance: SOMATROPIN

REACTIONS (13)
  - Pneumonia [Unknown]
  - Palpitations [Unknown]
  - Constipation [Unknown]
  - Fatigue [Unknown]
  - Pain [Unknown]
  - Impaired quality of life [Unknown]
  - Urticaria [Unknown]
  - Oropharyngeal pain [Unknown]
  - Asthma [Not Recovered/Not Resolved]
  - Injection site reaction [Unknown]
  - Drug ineffective [Unknown]
  - Product use in unapproved indication [Unknown]
  - Product dose omission in error [Unknown]

NARRATIVE: CASE EVENT DATE: 20220101
